FAERS Safety Report 7429123-X (Version None)
Quarter: 2011Q2

REPORT INFORMATION
  Report Type: 
  Country: None (occurrence: None)
  Receive Date: 20110421
  Receipt Date: 20110413
  Transmission Date: 20111010
  Serious: Yes (Other)
  Sender: FDA-Public Use
  Company Number: US-B.I. PHARMACEUTICALS,INC./RIDGEFIELD-2011-BP-10691BP

PATIENT
  Age: 39 Year
  Sex: Female
  Weight: 115.6 kg

DRUGS (2)
  1. MOBIC [Suspect]
     Indication: ARTHRITIS
     Dosage: 7.5 MG
     Route: 048
     Dates: start: 20100101
  2. CELEBREX [Suspect]
     Indication: ARTHRITIS
     Dates: start: 20040101, end: 20050101

REACTIONS (4)
  - ARTHRITIS [None]
  - HYPERSENSITIVITY [None]
  - ARTHRALGIA [None]
  - PAIN [None]
